FAERS Safety Report 10932863 (Version 2)
Quarter: 2015Q2

REPORT INFORMATION
  Report Type: Report from Study
  Country: CA (occurrence: CA)
  Receive Date: 20150320
  Receipt Date: 20150407
  Transmission Date: 20150821
  Serious: Yes (Hospitalization, Other)
  Sender: FDA-Public Use
  Company Number: CA-ABBVIE-15K-028-1349326-00

PATIENT
  Age: 15 Year
  Sex: Male
  Weight: 87.7 kg

DRUGS (5)
  1. HUMIRA [Suspect]
     Active Substance: ADALIMUMAB
     Indication: CROHN^S DISEASE
     Route: 058
     Dates: start: 20120404, end: 20140201
  2. HUMIRA [Suspect]
     Active Substance: ADALIMUMAB
     Route: 058
     Dates: start: 20140201, end: 20150129
  3. HUMIRA [Suspect]
     Active Substance: ADALIMUMAB
     Route: 058
     Dates: start: 20150327
  4. METHOTREXATE [Concomitant]
     Active Substance: METHOTREXATE
     Indication: PRODUCT USED FOR UNKNOWN INDICATION
     Route: 058
     Dates: start: 20120504, end: 20130713
  5. METHOTREXATE [Concomitant]
     Active Substance: METHOTREXATE
     Route: 048
     Dates: start: 20130713, end: 20150129

REACTIONS (6)
  - Postoperative wound infection [Recovered/Resolved]
  - Wound secretion [Recovering/Resolving]
  - Postoperative abscess [Recovered/Resolved]
  - Incision site infection [Unknown]
  - Intestinal dilatation [Unknown]
  - Ileal stenosis [Unknown]

NARRATIVE: CASE EVENT DATE: 201502
